FAERS Safety Report 9648937 (Version 2)
Quarter: 2019Q4

REPORT INFORMATION
  Report Type: Spontaneous
  Country: US (occurrence: US)
  Receive Date: 20131028
  Receipt Date: 20191219
  Transmission Date: 20200122
  Serious: Yes (Other)
  Sender: FDA-Public Use
  Company Number: US-UCBSA-101471

PATIENT
  Age: 44 Year
  Sex: Female

DRUGS (3)
  1. INH [Concomitant]
     Active Substance: ISONIAZID
     Dosage: UNKNOWN
  2. CIMZIA [Suspect]
     Active Substance: CERTOLIZUMAB PEGOL
     Indication: CROHN^S DISEASE
  3. RIFAMPIN. [Concomitant]
     Active Substance: RIFAMPIN
     Dosage: UNKNOWN

REACTIONS (1)
  - Latent tuberculosis [Unknown]
